FAERS Safety Report 25328396 (Version 1)
Quarter: 2025Q2

REPORT INFORMATION
  Report Type: Report from Study
  Country: US (occurrence: US)
  Receive Date: 20250518
  Receipt Date: 20250518
  Transmission Date: 20250717
  Serious: Yes (Other)
  Sender: ABBVIE
  Company Number: US-ABBVIE-6268005

PATIENT
  Age: 59 Year
  Sex: Female

DRUGS (1)
  1. QULIPTA [Suspect]
     Active Substance: ATOGEPANT
     Indication: Product used for unknown indication
     Route: 048
     Dates: start: 2023

REACTIONS (9)
  - Migraine [Unknown]
  - Behcet^s syndrome [Unknown]
  - Brain injury [Unknown]
  - Disability [Unknown]
  - Nervousness [Unknown]
  - Emotional distress [Unknown]
  - Fibromyalgia [Unknown]
  - Neck crushing [Unknown]
  - Feeling abnormal [Unknown]
